FAERS Safety Report 4621190-1 (Version None)
Quarter: 2005Q1

REPORT INFORMATION
  Report Type: 
  Country: None (occurrence: None)
  Receive Date: 20050328
  Receipt Date: 20050313
  Transmission Date: 20050727
  Serious: Yes (Other)
  Sender: FDA-Public Use
  Company Number: PHBS2005CA03909

PATIENT
  Sex: Female

DRUGS (1)
  1. VISUDYNE [Suspect]
     Indication: CHOROIDAL NEOVASCULARISATION
     Dates: start: 20040407, end: 20040407

REACTIONS (6)
  - INJECTION SITE EXTRAVASATION [None]
  - INJECTION SITE INFECTION [None]
  - INJECTION SITE PAIN [None]
  - MUSCLE ATROPHY [None]
  - NECROSIS [None]
  - NERVE DEGENERATION [None]
